FAERS Safety Report 10022816 (Version 1)
Quarter: 2014Q1

REPORT INFORMATION
  Report Type: Spontaneous
  Country: US (occurrence: US)
  Receive Date: 20140319
  Receipt Date: 20140319
  Transmission Date: 20141002
  Serious: Yes (Other)
  Sender: FDA-Public Use
  Company Number: US-PFIZER INC-2014068294

PATIENT
  Age: 62 Year
  Sex: Female

DRUGS (1)
  1. PREPARATION H MAXIMUM STRENGTH [Suspect]
     Indication: HAEMORRHOIDS
     Dosage: UNK

REACTIONS (5)
  - Weight decreased [Unknown]
  - Fluid retention [Unknown]
  - Poor quality drug administered [Unknown]
  - Visual impairment [Unknown]
  - Product quality issue [Unknown]
